FAERS Safety Report 4736535-1 (Version None)
Quarter: 2005Q3

REPORT INFORMATION
  Report Type: 
  Country: None (occurrence: None)
  Receive Date: 20050802
  Receipt Date: 20050720
  Transmission Date: 20060218
  Serious: Yes (Hospitalization)
  Sender: FDA-Public Use
  Company Number: 2005105353

PATIENT
  Age: 78 Year
  Sex: Female
  Weight: 72 kg

DRUGS (4)
  1. ACUITEL (QUINAPRIL HYDROCHLORIDE) [Suspect]
     Indication: ESSENTIAL HYPERTENSION
     Dosage: 5 MG (5 MG, EVERY DAY), ORAL
     Route: 048
     Dates: end: 20050620
  2. PAROXETINE HCL [Suspect]
     Indication: DYSTHYMIC DISORDER
     Dosage: 20 MG (20 MG, EVERY DAY), ORAL
     Route: 048
     Dates: start: 20050610, end: 20050614
  3. OMEPRAZOLE [Suspect]
     Indication: ILL-DEFINED DISORDER
     Dosage: 20 MG (20 MG, EVERY DAY), ORAL
     Route: 048
     Dates: end: 20050620
  4. ACETYLSALICYLATE LYSINE (ACETYLSALICYLATE LYSINE) [Concomitant]

REACTIONS (2)
  - DRUG INTERACTION [None]
  - HYPONATRAEMIA [None]
